FAERS Safety Report 6341768-7 (Version None)
Quarter: 2009Q3

REPORT INFORMATION
  Report Type: 
  Country: None (occurrence: None)
  Receive Date: 20090902
  Receipt Date: 20090902
  Transmission Date: 20100115
  Serious: Yes (Other)
  Sender: FDA-Public Use
  Company Number: None

PATIENT
  Age: 13 Year
  Sex: Male
  Weight: 27.7 kg

DRUGS (2)
  1. RISPERIDONE 1MG/ML PATRIOT [Suspect]
     Indication: AUTISM
     Dosage: 0.8ML TWICE DAILY OTHER
     Route: 050
     Dates: start: 20090616, end: 20090829
  2. RISPERIDONE 1MG/ML PATRIOT [Suspect]
     Indication: PSYCHOMOTOR HYPERACTIVITY
     Dosage: 0.8ML TWICE DAILY OTHER
     Route: 050
     Dates: start: 20090616, end: 20090829

REACTIONS (4)
  - AGGRESSION [None]
  - CONDITION AGGRAVATED [None]
  - PRODUCT SUBSTITUTION ISSUE [None]
  - PSYCHOMOTOR HYPERACTIVITY [None]
